FAERS Safety Report 9325697 (Version 2)
Quarter: 2014Q2

REPORT INFORMATION
  Report Type: Report from Study
  Country: JP (occurrence: JP)
  Receive Date: 20130604
  Receipt Date: 20140403
  Transmission Date: 20141212
  Serious: Yes (Other)
  Sender: FDA-Public Use
  Company Number: PHHY2013JP055736

PATIENT
  Age: 38 Year
  Sex: Male

DRUGS (10)
  1. FTY 720 [Suspect]
     Indication: MULTIPLE SCLEROSIS
     Dosage: 0.5 MG, QD
     Route: 048
     Dates: start: 20130410, end: 20130528
  2. PREDONINE [Concomitant]
     Dosage: 25 MG, UNK
     Route: 048
     Dates: start: 20130202
  3. BETANIS [Concomitant]
     Dosage: 30 MG, UNK
     Route: 048
  4. ADEFURONIC [Concomitant]
     Dosage: 50 MG, UNK
     Route: 048
  5. TEPRENONE [Concomitant]
     Dosage: 150 MG, UNK
     Route: 048
  6. ALENDRONATE SODIUM [Concomitant]
     Dosage: 35 MG, UNK
     Route: 048
  7. MYSLEE [Concomitant]
     Dosage: 10 MG, UNK
     Route: 048
  8. PRIMPERAN [Concomitant]
     Dosage: 5 MG, PRN
     Route: 048
  9. BUSCOPAN [Concomitant]
     Dosage: 10 MG, PRN
     Route: 048
  10. KETOPROFEN [Concomitant]
     Route: 061

REACTIONS (1)
  - Haemoglobin decreased [Not Recovered/Not Resolved]
